FAERS Safety Report 7402115-2 (Version None)
Quarter: 2011Q2

REPORT INFORMATION
  Report Type: 
  Country: None (occurrence: None)
  Receive Date: 20110408
  Receipt Date: 20110328
  Transmission Date: 20111010
  Serious: Yes (Disabling)
  Sender: FDA-Public Use
  Company Number: CA-SOLVAY-00311002470

PATIENT
  Age: 37 Year
  Sex: Male

DRUGS (3)
  1. ANDROGEL [Suspect]
     Indication: PRODUCT USED FOR UNKNOWN INDICATION
     Dosage: DAILY DOSE:  UNKNOWN, AS USED: 5 G SACHETS
     Route: 062
     Dates: start: 20070101
  2. TECTA [Concomitant]
     Indication: GASTROOESOPHAGEAL REFLUX DISEASE
     Dosage: DAILY DOSE: 40 MILLIGRAM(S)
     Route: 048
     Dates: start: 20110323
  3. ANDROGEL [Suspect]
     Dosage: DAILY DOSE: 5 GRAM(S)
     Route: 062
     Dates: start: 20110309

REACTIONS (5)
  - DRUG INEFFECTIVE [None]
  - ALOPECIA [None]
  - SKIN MASS [None]
  - FATIGUE [None]
  - PAIN [None]
